FAERS Safety Report 5505712-4 (Version None)
Quarter: 2007Q4

REPORT INFORMATION
  Report Type: 
  Country: None (occurrence: None)
  Receive Date: 20071102
  Receipt Date: 20071025
  Transmission Date: 20080405
  Serious: Yes (Hospitalization)
  Sender: FDA-Public Use
  Company Number: JP-ABBOTT-07P-087-0422072-00

PATIENT
  Age: 81 Year
  Sex: Male

DRUGS (1)
  1. CEFZON [Suspect]
     Indication: DRUG USE FOR UNKNOWN INDICATION
     Route: 048
     Dates: start: 20071011, end: 20071014

REACTIONS (1)
  - OCULOMUCOCUTANEOUS SYNDROME [None]
